FAERS Safety Report 6651518-2 (Version None)
Quarter: 2010Q1

REPORT INFORMATION
  Report Type: 
  Country: None (occurrence: None)
  Receive Date: 20100325
  Receipt Date: 20100316
  Transmission Date: 20100710
  Serious: Yes (Death, Hospitalization)
  Sender: FDA-Public Use
  Company Number: A0784364A

PATIENT
  Age: 62 Year
  Sex: Male

DRUGS (2)
  1. AVANDIA [Suspect]
     Route: 048
     Dates: start: 20001001, end: 20070601
  2. AVANDARYL [Suspect]
     Dosage: 2TAB PER DAY
     Route: 048

REACTIONS (5)
  - CARDIAC ARREST [None]
  - CARDIAC FAILURE CONGESTIVE [None]
  - CIRCULATORY COLLAPSE [None]
  - MYOCARDIAL ISCHAEMIA [None]
  - TYPE 2 DIABETES MELLITUS [None]
